FAERS Safety Report 14729732 (Version 1)
Quarter: 2018Q2

REPORT INFORMATION
  Report Type: Spontaneous
  Country: US (occurrence: US)
  Receive Date: 20180406
  Receipt Date: 20180406
  Transmission Date: 20180711
  Serious: Yes (Other)
  Sender: FDA-Public Use
  Company Number: US-EGALET US INC-US-2018EGA000314

PATIENT

DRUGS (1)
  1. MORPHINE SULFATE. [Suspect]
     Active Substance: MORPHINE SULFATE
     Indication: ANALGESIC THERAPY
     Dosage: 4 MG, PER HOUR
     Route: 042

REACTIONS (4)
  - Cardiac arrest [Unknown]
  - Brain injury [Unknown]
  - Unresponsive to stimuli [Unknown]
  - Drug prescribing error [Unknown]
